FAERS Safety Report 5228761-2 (Version None)
Quarter: 2007Q1

REPORT INFORMATION
  Report Type: 
  Country: None (occurrence: None)
  Receive Date: 20070131
  Receipt Date: 20070119
  Transmission Date: 20070707
  Serious: Yes (Hospitalization)
  Sender: FDA-Public Use
  Company Number: TPA2006A01857

PATIENT
  Age: 56 Year
  Sex: Female
  Weight: 122.5 kg

DRUGS (8)
  1. PIOGLITAZONE HCL [Suspect]
     Indication: GLUCOSE TOLERANCE IMPAIRED
     Dosage: 1 IN 1 D, PER ORAL
     Route: 048
     Dates: start: 20060105
  2. LIPITOR [Concomitant]
  3. ASPIRIN [Concomitant]
  4. NORVASC [Concomitant]
  5. LASIX [Concomitant]
  6. TRAMADOL HCL [Concomitant]
  7. LISINOPRIL [Concomitant]
  8. CITALOPRAM [Concomitant]

REACTIONS (1)
  - MUSCULOSKELETAL CHEST PAIN [None]
